FAERS Safety Report 17787781 (Version 1)
Quarter: 2020Q2

REPORT INFORMATION
  Report Type: Other
  Country: CA (occurrence: CA)
  Receive Date: 20200514
  Receipt Date: 20200514
  Transmission Date: 20200714
  Serious: Yes (Other)
  Sender: FDA-Public Use
  Company Number: CA-APOTEX-2020AP010781

PATIENT
  Age: 70 Year
  Sex: Female

DRUGS (2)
  1. ACETAMINOPHEN. [Concomitant]
     Active Substance: ACETAMINOPHEN
     Indication: CHRONIC SPONTANEOUS URTICARIA
     Dosage: 2 DF, QID
     Route: 048
  2. MOXIFLOXACIN. [Suspect]
     Active Substance: MOXIFLOXACIN
     Indication: CHRONIC SPONTANEOUS URTICARIA
     Dosage: 1 GTT, QD
     Route: 047

REACTIONS (8)
  - Urticaria [Unknown]
  - Pruritus [Unknown]
  - Erythema [Unknown]
  - Suicidal ideation [Unknown]
  - Drug ineffective for unapproved indication [Unknown]
  - Skin swelling [Unknown]
  - Feeling hot [Unknown]
  - Product use in unapproved indication [Unknown]
